FAERS Safety Report 17505217 (Version 6)
Quarter: 2020Q3

REPORT INFORMATION
  Report Type: Report from Study
  Country: US (occurrence: US)
  Receive Date: 20200305
  Receipt Date: 20200727
  Transmission Date: 20201102
  Serious: Yes (Hospitalization)
  Sender: FDA-Public Use
  Company Number: US-ACTELION-A-NJ2020-202675

PATIENT
  Sex: Female
  Weight: 58.5 kg

DRUGS (9)
  1. UPTRAVI [Suspect]
     Active Substance: SELEXIPAG
     Dosage: 400 MCG, QD
     Route: 048
  2. ELIQUIS [Concomitant]
     Active Substance: APIXABAN
  3. PLAVIX [Concomitant]
     Active Substance: CLOPIDOGREL BISULFATE
  4. OXYGEN. [Concomitant]
     Active Substance: OXYGEN
     Dosage: 5 L, QD
  5. UPTRAVI [Suspect]
     Active Substance: SELEXIPAG
     Dosage: 400 MCG, BID
     Route: 048
  6. NIFEDIPINE. [Concomitant]
     Active Substance: NIFEDIPINE
  7. OXYGEN. [Concomitant]
     Active Substance: OXYGEN
     Dosage: UNK
  8. UPTRAVI [Suspect]
     Active Substance: SELEXIPAG
     Indication: PULMONARY ARTERIAL HYPERTENSION
     Dosage: 200 MCG, BID
     Route: 048
  9. OPSUMIT [Suspect]
     Active Substance: MACITENTAN
     Indication: PULMONARY ARTERIAL HYPERTENSION
     Dosage: 10 MG, QD
     Route: 048

REACTIONS (10)
  - Pneumonia [Unknown]
  - Coronary arterial stent insertion [Unknown]
  - Dyspnoea [Recovering/Resolving]
  - Fluid retention [Unknown]
  - Renal failure [Unknown]
  - Nephrolithiasis [Unknown]
  - Flank pain [Unknown]
  - Peripheral swelling [Not Recovered/Not Resolved]
  - Oxygen saturation decreased [Unknown]
  - Condition aggravated [Not Recovered/Not Resolved]
